FAERS Safety Report 24953663 (Version 1)
Quarter: 2025Q1

REPORT INFORMATION
  Report Type: Spontaneous
  Country: US (occurrence: US)
  Receive Date: 20250211
  Receipt Date: 20250211
  Transmission Date: 20250409
  Serious: Yes (Life-Threatening, Hospitalization, Other)
  Sender: UNICHEM
  Company Number: US-UNICHEM LABORATORIES LIMITED-UNI-2025-US-000253

PATIENT

DRUGS (8)
  1. FLUOXETINE [Suspect]
     Active Substance: FLUOXETINE HYDROCHLORIDE
     Indication: Depression
     Route: 064
  2. FLUOXETINE [Suspect]
     Active Substance: FLUOXETINE HYDROCHLORIDE
     Indication: Anxiety
  3. QUETIAPINE [Suspect]
     Active Substance: QUETIAPINE
     Indication: Depression
     Route: 064
  4. CLONAZEPAM [Suspect]
     Active Substance: CLONAZEPAM
     Indication: Epilepsy
     Route: 064
  5. CLONAZEPAM [Suspect]
     Active Substance: CLONAZEPAM
     Indication: Drug use disorder
  6. INSULIN NOS [Suspect]
     Active Substance: INSULIN NOS
     Indication: Diabetes mellitus
     Route: 064
  7. ZONISAMIDE [Suspect]
     Active Substance: ZONISAMIDE
     Indication: Epilepsy
     Route: 064
  8. ZONISAMIDE [Suspect]
     Active Substance: ZONISAMIDE
     Indication: Obesity

REACTIONS (5)
  - Infantile apnoea [Recovering/Resolving]
  - Hypotonia neonatal [Recovering/Resolving]
  - Cortical dysplasia [Recovering/Resolving]
  - Tremor [Recovering/Resolving]
  - Foetal exposure during pregnancy [Unknown]
